FAERS Safety Report 8545597-5 (Version None)
Quarter: 2012Q3

REPORT INFORMATION
  Report Type: 
  Country: None (occurrence: None)
  Receive Date: 20120718
  Receipt Date: 20120718
  Transmission Date: 20120928
  Serious: No
  Sender: FDA-Public Use
  Company Number: None

PATIENT
  Age: 36 Year
  Sex: Female
  Weight: 120.6568 kg

DRUGS (2)
  1. ESCITALOPRAM [Suspect]
     Indication: DEPRESSION
     Dates: start: 20120323
  2. ESCITALOPRAM [Suspect]
     Indication: DEPRESSION
     Dates: start: 20120403

REACTIONS (5)
  - PRODUCT SUBSTITUTION ISSUE [None]
  - NAUSEA [None]
  - APPETITE DISORDER [None]
  - SLEEP DISORDER [None]
  - DRUG EFFECT DECREASED [None]
